FAERS Safety Report 6451609-5 (Version None)
Quarter: 2009Q4

REPORT INFORMATION
  Report Type: 
  Country: None (occurrence: None)
  Receive Date: 20091123
  Receipt Date: 20091112
  Transmission Date: 20100525
  Serious: Yes (Disabling, Other)
  Sender: FDA-Public Use
  Company Number: PHHY2009AU19082

PATIENT
  Sex: Female
  Weight: 78 kg

DRUGS (2)
  1. GLEEVEC [Suspect]
     Indication: CHRONIC MYELOID LEUKAEMIA
     Dosage: 400 MG DAILY
     Route: 048
     Dates: start: 20080801
  2. GLEEVEC [Suspect]
     Dosage: 400 MG EVERY SECOND DAY

REACTIONS (5)
  - ANAEMIA [None]
  - CHROMOSOME ANALYSIS ABNORMAL [None]
  - CYSTITIS NONINFECTIVE [None]
  - PAIN IN EXTREMITY [None]
  - URINARY TRACT INFECTION [None]
